FAERS Safety Report 9297976 (Version 1)
Quarter: 2013Q2

REPORT INFORMATION
  Report Type: Report from Study
  Country: MX (occurrence: MX)
  Receive Date: 20130520
  Receipt Date: 20130520
  Transmission Date: 20140414
  Serious: Yes (Other)
  Sender: FDA-Public Use
  Company Number: PHHY2013MX049870

PATIENT
  Age: 77 Year
  Sex: Female

DRUGS (5)
  1. TEGRETOL [Suspect]
     Dosage: 1.5 DF, DAILY
     Route: 048
  2. COAPROVEL [Concomitant]
     Indication: BLOOD PRESSURE ABNORMAL
     Dosage: 1 DF, DAILY
     Dates: start: 2003
  3. CRESTOR [Concomitant]
     Indication: BLOOD CHOLESTEROL ABNORMAL
     Dosage: 1 DF, DAILY
     Dates: start: 1998
  4. PREMARIN [Concomitant]
     Indication: HORMONE LEVEL ABNORMAL
     Dosage: 1 DF, DAILY
  5. AMLODIPINE [Concomitant]
     Indication: BLOOD PRESSURE ABNORMAL
     Dosage: 1 DF, DAILY
     Dates: start: 2003

REACTIONS (2)
  - Trigeminal neuralgia [Recovered/Resolved]
  - Amnesia [Recovered/Resolved]
